FAERS Safety Report 5780677-9 (Version None)
Quarter: 2008Q2

REPORT INFORMATION
  Report Type: 
  Country: None (occurrence: None)
  Receive Date: 20080620
  Receipt Date: 20080606
  Transmission Date: 20081010
  Serious: No
  Sender: FDA-Public Use
  Company Number: US-BOEHRINGER INGELHEIM GMBH, GERMANY-2008-BP-08914BP

PATIENT
  Sex: Female

DRUGS (3)
  1. MIRAPEX [Suspect]
     Indication: RESTLESS LEGS SYNDROME
  2. REQUIP [Concomitant]
     Indication: RESTLESS LEGS SYNDROME
  3. OTHER OVER-THE-COUNTER SLEEP AID [Concomitant]
     Indication: RESTLESS LEGS SYNDROME

REACTIONS (7)
  - ACTIVITIES OF DAILY LIVING IMPAIRED [None]
  - FATIGUE [None]
  - LIMB DISCOMFORT [None]
  - MOOD ALTERED [None]
  - MOVEMENT DISORDER [None]
  - SLEEP DISORDER [None]
  - SOMNOLENCE [None]
